FAERS Safety Report 17408711 (Version 4)
Quarter: 2020Q4

REPORT INFORMATION
  Report Type: Spontaneous
  Country: US (occurrence: US)
  Receive Date: 20200212
  Receipt Date: 20201008
  Transmission Date: 20210113
  Serious: No
  Sender: FDA-Public Use
  Company Number: US-VERTEX PHARMACEUTICALS-2020-002202

PATIENT
  Sex: Female

DRUGS (3)
  1. TRIKAFTA [Suspect]
     Active Substance: ELEXACAFTOR\IVACAFTOR\TEZACAFTOR
     Dosage: 150MG IVACAFTOR AM;100MG ELEXACAFTOR/50MG TEZACAFTOR/75MG IVACAFTOR PM
     Route: 048
     Dates: start: 202009
  2. CAYSTON [Concomitant]
     Active Substance: AZTREONAM
     Dosage: 75MG, TID
     Route: 055
  3. TRIKAFTA [Suspect]
     Active Substance: ELEXACAFTOR\IVACAFTOR\TEZACAFTOR
     Indication: CYSTIC FIBROSIS
     Dosage: 100MG ELEXACAFTOR/50MG TEZACAFTOR/75MG IVACAFTOR AM AND 150MG IVACAFTOR PM
     Route: 048
     Dates: start: 2020, end: 202009

REACTIONS (11)
  - Drug hypersensitivity [Unknown]
  - Rash [Recovered/Resolved]
  - Joint swelling [Recovering/Resolving]
  - Agitation [Unknown]
  - Feeling drunk [Unknown]
  - Productive cough [Unknown]
  - Feeling abnormal [Unknown]
  - Swelling [Recovering/Resolving]
  - Illness [Unknown]
  - Fatigue [Unknown]
  - Swelling face [Recovering/Resolving]

NARRATIVE: CASE EVENT DATE: 2020
